FAERS Safety Report 10641863 (Version 2)
Quarter: 2014Q4

REPORT INFORMATION
  Report Type: Spontaneous
  Country: DE (occurrence: DE)
  Receive Date: 20141209
  Receipt Date: 20141209
  Transmission Date: 20150529
  Serious: Yes (Life-Threatening)
  Sender: FDA-Public Use
  Company Number: GXKR2014DE004237

PATIENT
  Age: 7 Year
  Sex: Female

DRUGS (1)
  1. METHADDICT [Suspect]
     Active Substance: METHADONE HYDROCHLORIDE
     Route: 048

REACTIONS (3)
  - Toxicologic test abnormal [Recovered/Resolved]
  - Accidental exposure to product by child [Recovered/Resolved]
  - Drug screen positive [Recovered/Resolved]
